FAERS Safety Report 12706998 (Version 1)
Quarter: 2016Q3

REPORT INFORMATION
  Report Type: Spontaneous
  Country: FR (occurrence: FR)
  Receive Date: 20160901
  Receipt Date: 20160901
  Transmission Date: 20161109
  Serious: Yes (Other)
  Sender: FDA-Public Use
  Company Number: PHHY2016FR117569

PATIENT
  Age: 57 Year
  Sex: Male

DRUGS (1)
  1. IMATINIB [Suspect]
     Active Substance: IMATINIB
     Indication: CHORDOMA
     Dosage: 400 MG, QD
     Route: 065

REACTIONS (4)
  - Neoplasm progression [Unknown]
  - Chordoma [Unknown]
  - Basedow^s disease [Recovering/Resolving]
  - Product use issue [Unknown]
